FAERS Safety Report 5805522-4 (Version None)
Quarter: 2008Q3

REPORT INFORMATION
  Report Type: 
  Country: None (occurrence: None)
  Receive Date: 20080710
  Receipt Date: 20080609
  Transmission Date: 20090109
  Serious: No
  Sender: FDA-Public Use
  Company Number: US-BAYER-200815223NA

PATIENT
  Age: 42 Year
  Sex: Female

DRUGS (2)
  1. MIRENA [Suspect]
     Indication: MENSTRUATION IRREGULAR
     Route: 015
     Dates: start: 20071009
  2. IBUPROFEN [Concomitant]
     Indication: PROCEDURAL PAIN

REACTIONS (6)
  - ABDOMINAL PAIN [None]
  - ASTHENIA [None]
  - GENITAL HAEMORRHAGE [None]
  - PELVIC PAIN [None]
  - PROCEDURAL PAIN [None]
  - VAGINAL HAEMORRHAGE [None]
